FAERS Safety Report 25042809 (Version 1)
Quarter: 2025Q1

REPORT INFORMATION
  Report Type: Spontaneous
  Country: CA (occurrence: CA)
  Receive Date: 20250305
  Receipt Date: 20250305
  Transmission Date: 20250409
  Serious: Yes (Death, Life-Threatening, Hospitalization, Other)
  Sender: MYLAN
  Company Number: CA-MYLANLABS-2025M1019199

PATIENT
  Age: 88 Year
  Sex: Male
  Weight: 52 kg

DRUGS (24)
  1. VERAPAMIL [Interacting]
     Active Substance: VERAPAMIL HYDROCHLORIDE
     Indication: Product used for unknown indication
  2. ELIQUIS [Interacting]
     Active Substance: APIXABAN
     Indication: Cerebrovascular accident prophylaxis
     Dosage: 5 MILLIGRAM, BID (2 EVERY 1 DAYS)
  3. ASPIRIN [Interacting]
     Active Substance: ASPIRIN
     Indication: Arteriosclerosis
     Dosage: 80 MILLIGRAM, QD (1 EVERY 1 DAYS)
  4. ACETAMINOPHEN [Concomitant]
     Active Substance: ACETAMINOPHEN
  5. ASPIRIN [Concomitant]
     Active Substance: ASPIRIN
     Indication: Arteriosclerosis
     Dosage: 80 MILLIGRAM, QD (1 EVERY 1 DAYS)
  6. ACLIDINIUM BROMIDE [Concomitant]
     Active Substance: ACLIDINIUM BROMIDE
  7. ASPIRIN [Concomitant]
     Active Substance: ASPIRIN
     Indication: Arteriosclerosis
  8. ATORVASTATIN [Concomitant]
     Active Substance: ATORVASTATIN
  9. BUDESONIDE\FORMOTEROL FUMARATE [Concomitant]
     Active Substance: BUDESONIDE\FORMOTEROL FUMARATE
  10. BUDESONIDE AND FORMOTEROL FUMARATE DIHYDRATE [Concomitant]
     Active Substance: BUDESONIDE\FORMOTEROL FUMARATE
  11. CALCIUM\CHOLECALCIFEROL [Concomitant]
     Active Substance: CALCIUM\CHOLECALCIFEROL
  12. CYANOCOBALAMIN [Concomitant]
     Active Substance: CYANOCOBALAMIN
  13. DEXILANT [Concomitant]
     Active Substance: DEXLANSOPRAZOLE
  14. DOCUSATE SODIUM [Concomitant]
     Active Substance: DOCUSATE SODIUM
  15. HYDROMORPHONE [Concomitant]
     Active Substance: HYDROMORPHONE
  16. HYDROMORPHONE [Concomitant]
     Active Substance: HYDROMORPHONE
  17. LEVOTHYROXINE SODIUM [Concomitant]
     Active Substance: LEVOTHYROXINE SODIUM
  18. LOSARTAN [Concomitant]
     Active Substance: LOSARTAN
  19. OXAZEPAM [Concomitant]
     Active Substance: OXAZEPAM
  20. PREDNISONE [Concomitant]
     Active Substance: PREDNISONE
  21. ALBUTEROL [Concomitant]
     Active Substance: ALBUTEROL
  22. SENNOSIDES [Concomitant]
     Active Substance: SENNOSIDES
  23. XGEVA [Concomitant]
     Active Substance: DENOSUMAB
  24. GOSERELIN [Concomitant]
     Active Substance: GOSERELIN

REACTIONS (3)
  - Anaemia [Fatal]
  - Drug interaction [Fatal]
  - Product administration error [Fatal]
